FAERS Safety Report 20621869 (Version 1)
Quarter: 2022Q1

REPORT INFORMATION
  Report Type: Spontaneous
  Country: US (occurrence: None)
  Receive Date: 20220321
  Receipt Date: 20220321
  Transmission Date: 20220423
  Serious: Yes (unspecified)
  Sender: FDA-Public Use
  Company Number: None

PATIENT
  Age: 42 Year
  Sex: Female
  Weight: 49.5 kg

DRUGS (1)
  1. SAPHNELO [Suspect]
     Active Substance: ANIFROLUMAB-FNIA
     Indication: Systemic lupus erythematosus
     Route: 041
     Dates: start: 20220321, end: 20220321

REACTIONS (4)
  - Flushing [None]
  - Chest discomfort [None]
  - Nausea [None]
  - Infusion related reaction [None]

NARRATIVE: CASE EVENT DATE: 20220321
